FAERS Safety Report 10711394 (Version 2)
Quarter: 2015Q1

REPORT INFORMATION
  Report Type: Spontaneous
  Country: DE (occurrence: DE)
  Receive Date: 20150114
  Receipt Date: 20150220
  Transmission Date: 20150721
  Serious: Yes (Hospitalization, Other)
  Sender: FDA-Public Use
  Company Number: PHHY2014DE152849

PATIENT
  Sex: Male
  Weight: 75 kg

DRUGS (3)
  1. GLIVEC [Suspect]
     Active Substance: IMATINIB MESYLATE
     Indication: GASTROINTESTINAL STROMAL TUMOUR
     Dosage: 400 MG
     Route: 065
     Dates: start: 200608, end: 200908
  2. GLIVEC [Suspect]
     Active Substance: IMATINIB MESYLATE
     Dosage: 400 MG
     Route: 065
     Dates: start: 201112
  3. LOSAR PLUS [Concomitant]
     Indication: HYPERTENSION
     Dosage: 0.5 DF, QD (100/25)
     Route: 065

REACTIONS (5)
  - Neoplasm recurrence [Recovered/Resolved]
  - Hypertension [Unknown]
  - Chronic lymphocytic leukaemia stage 1 [Unknown]
  - Second primary malignancy [Unknown]
  - Gastrointestinal stromal tumour [Recovered/Resolved]

NARRATIVE: CASE EVENT DATE: 201010
